FAERS Safety Report 9305380 (Version 3)
Quarter: 2013Q3

REPORT INFORMATION
  Report Type: Spontaneous
  Country: FR (occurrence: FR)
  Receive Date: 20130523
  Receipt Date: 20130816
  Transmission Date: 20140515
  Serious: Yes (Death, Hospitalization)
  Sender: FDA-Public Use
  Company Number: PHHY2013FR035412

PATIENT
  Age: 88 Year
  Sex: Male

DRUGS (1)
  1. ONBREZ [Suspect]
     Indication: CHRONIC OBSTRUCTIVE PULMONARY DISEASE
     Dosage: UNK

REACTIONS (6)
  - Cerebrovascular accident [Fatal]
  - Dyspnoea [Fatal]
  - Asthenia [Fatal]
  - Infection [Fatal]
  - Weight increased [Recovered/Resolved]
  - Blood glucose increased [Recovered/Resolved]
